FAERS Safety Report 18445358 (Version 1)
Quarter: 2020Q4

REPORT INFORMATION
  Report Type: Spontaneous
  Country: US (occurrence: US)
  Receive Date: 20201030
  Receipt Date: 20201030
  Transmission Date: 20210114
  Serious: Yes (Other)
  Sender: FDA-Public Use
  Company Number: US-009507513-2010USA011172

PATIENT
  Age: 70 Year
  Sex: Female
  Weight: 79.46 kg

DRUGS (2)
  1. KEYTRUDA [Suspect]
     Active Substance: PEMBROLIZUMAB
  2. LENVATINIB MESYLATE [Suspect]
     Active Substance: LENVATINIB MESYLATE
     Indication: PAPILLARY SEROUS ENDOMETRIAL CARCINOMA
     Dosage: 20 MILLIGRAM
     Route: 048
     Dates: start: 20200811

REACTIONS (3)
  - Hyperkeratosis [Recovering/Resolving]
  - Neuropathy peripheral [Recovering/Resolving]
  - Mobility decreased [Recovering/Resolving]

NARRATIVE: CASE EVENT DATE: 2020
